FAERS Safety Report 17113345 (Version 3)
Quarter: 2020Q2

REPORT INFORMATION
  Report Type: Report from Study
  Country: None (occurrence: US)
  Receive Date: 20191204
  Receipt Date: 20200520
  Transmission Date: 20200713
  Serious: Yes (Other)
  Sender: FDA-Public Use
  Company Number: US-ABBVIE-19K-163-2829741-00

PATIENT
  Sex: Male

DRUGS (1)
  1. HUMIRA [Suspect]
     Active Substance: ADALIMUMAB
     Indication: CROHN^S DISEASE
     Dosage: HUMIRA CITRATE FREE
     Route: 058

REACTIONS (6)
  - Constipation [Unknown]
  - Arthralgia [Not Recovered/Not Resolved]
  - Hernia [Unknown]
  - Haematochezia [Unknown]
  - Abdominal pain upper [Not Recovered/Not Resolved]
  - Drug ineffective [Unknown]
